FAERS Safety Report 20052791 (Version 1)
Quarter: 2021Q4

REPORT INFORMATION
  Report Type: Spontaneous
  Country: US (occurrence: US)
  Receive Date: 20211110
  Receipt Date: 20211110
  Transmission Date: 20220303
  Serious: Yes (Other)
  Sender: FDA-Public Use
  Company Number: US-TEVA-2021-US-1976377

PATIENT
  Sex: Male

DRUGS (2)
  1. AJOVY [Suspect]
     Active Substance: FREMANEZUMAB-VFRM
     Route: 065
     Dates: start: 201906
  2. AJOVY [Suspect]
     Active Substance: FREMANEZUMAB-VFRM

REACTIONS (5)
  - Deep vein thrombosis [Unknown]
  - Rhabdomyolysis [Unknown]
  - Peripheral swelling [Unknown]
  - Hypoglycaemia [Unknown]
  - Superficial vein thrombosis [Unknown]

NARRATIVE: CASE EVENT DATE: 20190101
